FAERS Safety Report 6252688-0 (Version None)
Quarter: 2009Q2

REPORT INFORMATION
  Report Type: 
  Country: None (occurrence: None)
  Receive Date: 20090629
  Receipt Date: 20090629
  Transmission Date: 20091009
  Serious: Yes (Hospitalization)
  Sender: FDA-Public Use
  Company Number: None

PATIENT
  Age: 54 Year
  Sex: Male
  Weight: 54.4 kg

DRUGS (1)
  1. GEMCITABINE [Suspect]
     Indication: NEOPLASM MALIGNANT
     Dosage: 1600 MG QWEEK IV
     Route: 042
     Dates: start: 20081101, end: 20090422

REACTIONS (1)
  - INTERSTITIAL LUNG DISEASE [None]
